FAERS Safety Report 7585320-4 (Version None)
Quarter: 2011Q2

REPORT INFORMATION
  Report Type: 
  Country: None (occurrence: None)
  Receive Date: 20110628
  Receipt Date: 20110628
  Transmission Date: 20111010
  Serious: Yes (Other)
  Sender: FDA-Public Use
  Company Number: None

PATIENT
  Age: 62 Year
  Sex: Female
  Weight: 84.1 kg

DRUGS (1)
  1. VYVANSE [Suspect]
     Indication: ATTENTION DEFICIT/HYPERACTIVITY DISORDER
     Dosage: 30MG 1 PER DAY MOUTH
     Route: 048
     Dates: start: 20110607, end: 20110622

REACTIONS (5)
  - IRRITABILITY [None]
  - CHEST PAIN [None]
  - AGITATION [None]
  - BRUXISM [None]
  - DYSPNOEA [None]
